FAERS Safety Report 17205368 (Version 1)
Quarter: 2020Q1

REPORT INFORMATION
  Report Type: Spontaneous
  Country: US (occurrence: US)
  Receive Date: 20191226
  Receipt Date: 20191226
  Transmission Date: 20200409
  Serious: Yes (Hospitalization)
  Sender: FDA-Public Use
  Company Number: None

PATIENT
  Age: 64 Year
  Sex: Female

DRUGS (4)
  1. PIQRAY [Suspect]
     Active Substance: ALPELISIB
     Indication: BREAST CANCER
     Route: 048
     Dates: start: 20191122
  2. FASLODEX,IBUPROFEN,ATIVAN [Concomitant]
  3. LISINOPRIL,ESCITALOPRAM [Concomitant]
  4. ONDANSETRON,FENTANYL,LETROZOLE [Concomitant]

REACTIONS (2)
  - Blood glucose increased [None]
  - Therapy cessation [None]
